FAERS Safety Report 6347582-0 (Version None)
Quarter: 2009Q3

REPORT INFORMATION
  Report Type: 
  Country: None (occurrence: None)
  Receive Date: 20090909
  Receipt Date: 20090909
  Transmission Date: 20100115
  Serious: Yes (Hospitalization)
  Sender: FDA-Public Use
  Company Number: None

PATIENT
  Sex: Female
  Weight: 100 kg

DRUGS (1)
  1. MIRENA [Suspect]

REACTIONS (9)
  - ABDOMINAL PAIN LOWER [None]
  - CHILLS [None]
  - DECREASED APPETITE [None]
  - HOT FLUSH [None]
  - INFECTION [None]
  - INSOMNIA [None]
  - INTRAUTERINE INFECTION [None]
  - MALAISE [None]
  - PELVIC INFECTION [None]
